FAERS Safety Report 24071473 (Version 3)
Quarter: 2024Q3

REPORT INFORMATION
  Report Type: Spontaneous
  Country: BR (occurrence: BR)
  Receive Date: 20240710
  Receipt Date: 20240710
  Transmission Date: 20241017
  Serious: No
  Sender: ROCHE
  Company Number: BR-ROCHE-3526793

PATIENT
  Age: 6 Year
  Sex: Male

DRUGS (2)
  1. EVRYSDI [Suspect]
     Active Substance: RISDIPLAM
     Indication: Spinal muscular atrophy
     Dosage: EXPIRY DATE: /JUN/2023
     Route: 050
  2. EVRYSDI [Suspect]
     Active Substance: RISDIPLAM
     Route: 050
     Dates: start: 20220802

REACTIONS (12)
  - Extravasation [Unknown]
  - Incorrect dose administered [Unknown]
  - Overdose [Unknown]
  - Increased bronchial secretion [Recovering/Resolving]
  - Salivary hypersecretion [Recovering/Resolving]
  - Fatigue [Recovered/Resolved]
  - Urine abnormality [Recovered/Resolved]
  - Dysphagia [Unknown]
  - Lymphocyte count increased [Unknown]
  - Aspartate aminotransferase increased [Unknown]
  - Alanine aminotransferase increased [Unknown]
  - Vitamin B12 increased [Unknown]

NARRATIVE: CASE EVENT DATE: 20240310
